FAERS Safety Report 4554709-X (Version None)
Quarter: 2005Q1

REPORT INFORMATION
  Report Type: 
  Country: None (occurrence: None)
  Receive Date: 20050114
  Receipt Date: 20040604
  Transmission Date: 20050727
  Serious: Yes (Hospitalization)
  Sender: FDA-Public Use
  Company Number: GXKR2004GB00504

PATIENT
  Age: 81 Year
  Sex: Male

DRUGS (6)
  1. DOXAZOSIN (NGX) (DOXAZOSIN) [Suspect]
     Indication: HYPERTENSION
     Dosage: 8 MG, QD, ORAL
     Route: 048
     Dates: end: 20040513
  2. DILTIAZEM HYDROCHLORIDE [Suspect]
     Indication: ANGINA PECTORIS
     Dosage: 90 MG, BID, ORAL
     Route: 048
     Dates: end: 20040513
  3. ASPIRIN [Concomitant]
  4. ATORVASTATIN (ATORVASTATIN) [Concomitant]
  5. DURAGESIC [Concomitant]
  6. NITROGLYCERIN [Concomitant]

REACTIONS (2)
  - CIRCULATORY COLLAPSE [None]
  - ORTHOSTATIC HYPOTENSION [None]
